FAERS Safety Report 11747537 (Version 1)
Quarter: 2015Q4

REPORT INFORMATION
  Report Type: Spontaneous
  Country: US (occurrence: US)
  Receive Date: 20151117
  Receipt Date: 20151117
  Transmission Date: 20160304
  Serious: Yes (Other)
  Sender: FDA-Public Use
  Company Number: US-PFIZER INC-2015386721

PATIENT
  Age: 63 Year
  Sex: Female

DRUGS (5)
  1. ATROPINE. [Concomitant]
     Active Substance: ATROPINE
     Dosage: UNK
     Route: 042
  2. VERAPAMIL HCL [Suspect]
     Active Substance: VERAPAMIL HYDROCHLORIDE
     Indication: PROPHYLAXIS
     Dosage: 240 MG, DAILY
  3. ISOPROTERENOL [Concomitant]
     Active Substance: ISOPROTERENOL
     Dosage: UNK
     Route: 042
  4. CLONAZEPAM. [Concomitant]
     Active Substance: CLONAZEPAM
     Indication: PROPHYLAXIS
     Dosage: 4 MG, DAILY
  5. CIMETIDINE [Interacting]
     Active Substance: CIMETIDINE
     Indication: PEPTIC ULCER
     Dosage: UNK

REACTIONS (7)
  - Renal failure [Recovered/Resolved]
  - Hypotension [Recovered/Resolved]
  - Intentional product misuse [Unknown]
  - Pancreatitis [Recovered/Resolved]
  - Drug interaction [Unknown]
  - Drug level increased [Unknown]
  - Nodal arrhythmia [Recovered/Resolved]
